FAERS Safety Report 7092075-9 (Version None)
Quarter: 2010Q4

REPORT INFORMATION
  Report Type: 
  Country: None (occurrence: None)
  Receive Date: 20101109
  Receipt Date: 20101028
  Transmission Date: 20110411
  Serious: Yes (Hospitalization, Other)
  Sender: FDA-Public Use
  Company Number: BR-US-EMD SERONO, INC.-7024985

PATIENT
  Sex: Male

DRUGS (6)
  1. REBIF [Suspect]
     Indication: RELAPSING-REMITTING MULTIPLE SCLEROSIS
     Dates: start: 20070528
  2. BACLOFEN [Suspect]
  3. URO-VAXOM [Concomitant]
  4. MACRODANTIN [Concomitant]
  5. PRIMIDONE [Concomitant]
  6. ASCORBIC ACID [Concomitant]

REACTIONS (2)
  - ISCHAEMIC STROKE [None]
  - URINARY TRACT INFECTION [None]
